FAERS Safety Report 16715911 (Version 1)
Quarter: 2019Q4

REPORT INFORMATION
  Report Type: Spontaneous
  Country: US (occurrence: US)
  Receive Date: 20190817
  Receipt Date: 20190817
  Transmission Date: 20200122
  Serious: Yes (Disabling)
  Sender: FDA-Public Use
  Company Number: None

PATIENT
  Age: 42 Year
  Sex: Female
  Weight: 81.45 kg

DRUGS (8)
  1. DULOXETINE HCL [Suspect]
     Active Substance: DULOXETINE HYDROCHLORIDE
     Indication: ARTHRALGIA
     Dosage: ?          QUANTITY:1 CAPSULE(S);?
     Route: 048
  2. LITHIUM CARBONATE. [Concomitant]
     Active Substance: LITHIUM CARBONATE
  3. VITAMIN D [Concomitant]
     Active Substance: VITAMIN D NOS
  4. DULOXETINE HCL [Suspect]
     Active Substance: DULOXETINE HYDROCHLORIDE
     Indication: FIBROMYALGIA
     Dosage: ?          QUANTITY:1 CAPSULE(S);?
     Route: 048
  5. MIRENA [Concomitant]
     Active Substance: LEVONORGESTREL
  6. QUETIAPINE. [Concomitant]
     Active Substance: QUETIAPINE
  7. SYNTHROID [Concomitant]
     Active Substance: LEVOTHYROXINE SODIUM
  8. BIOTIN [Concomitant]
     Active Substance: BIOTIN

REACTIONS (13)
  - Hyperhidrosis [None]
  - Cognitive disorder [None]
  - Tension headache [None]
  - Hypoaesthesia [None]
  - Decreased appetite [None]
  - Insomnia [None]
  - Lethargy [None]
  - Obsessive rumination [None]
  - Paranoia [None]
  - Panic attack [None]
  - Agitation [None]
  - Restlessness [None]
  - Paraesthesia [None]

NARRATIVE: CASE EVENT DATE: 20190812
